FAERS Safety Report 10932643 (Version 3)
Quarter: 2015Q2

REPORT INFORMATION
  Report Type: Spontaneous
  Country: US (occurrence: None)
  Receive Date: 20150318
  Receipt Date: 20150423
  Transmission Date: 20150821
  Serious: Yes (Life-Threatening, Hospitalization, Other)
  Sender: FDA-Public Use
  Company Number: US-TORRENT-00000909

PATIENT
  Age: 65 Year
  Sex: Male
  Weight: 95.26 kg

DRUGS (8)
  1. ZOLPIDEM TARTRATE) [Concomitant]
  2. VYVANSE [Concomitant]
     Active Substance: LISDEXAMFETAMINE DIMESYLATE
  3. DICYCLOMINE (DICYCLOMINE) [Concomitant]
  4. FLONASE (FLUTLCASONE PROLONATE (GLUCOCORTLCOID) [Concomitant]
  5. AXLRON [Concomitant]
  6. LEVOFLOXACIN. [Suspect]
     Active Substance: LEVOFLOXACIN
     Indication: SINUSITIS
     Dosage: ONE TABLETS DAILY
     Dates: start: 20150131
  7. LINZESS [Concomitant]
     Active Substance: LINACLOTIDE
  8. CLONAZEPAM (CLONAZEPAM) [Concomitant]
     Active Substance: CLONAZEPAM

REACTIONS (4)
  - Arthralgia [None]
  - Back pain [None]
  - Pain in extremity [None]
  - Hypoaesthesia [None]

NARRATIVE: CASE EVENT DATE: 20150131
